FAERS Safety Report 8493456-9 (Version None)
Quarter: 2012Q3

REPORT INFORMATION
  Report Type: 
  Country: None (occurrence: None)
  Receive Date: 20120706
  Receipt Date: 20120625
  Transmission Date: 20120928
  Serious: Yes (Hospitalization)
  Sender: FDA-Public Use
  Company Number: JP-FRI-1000026284

PATIENT
  Sex: Female
  Weight: 73.4 kg

DRUGS (5)
  1. MEMANTINE HCL [Suspect]
     Indication: DEMENTIA ALZHEIMER'S TYPE
     Dosage: 5 MG
     Route: 048
     Dates: start: 20110615, end: 20110628
  2. MEMANTINE HCL [Suspect]
     Dosage: 10 MG
     Route: 048
     Dates: start: 20110629, end: 20110702
  3. AMITRIPTYLINE HCL [Suspect]
     Indication: DEPRESSION
     Dosage: 10 MG
     Route: 048
  4. MEMANTINE HCL [Suspect]
     Dosage: 15 MG
     Route: 048
     Dates: start: 20110703, end: 20110726
  5. MEMANTINE HCL [Suspect]
     Dosage: 20 MG
     Route: 048
     Dates: start: 20110727, end: 20111115

REACTIONS (1)
  - PANCYTOPENIA [None]
